FAERS Safety Report 25740240 (Version 1)
Quarter: 2025Q3

REPORT INFORMATION
  Report Type: Spontaneous
  Country: US (occurrence: None)
  Receive Date: 20250828
  Receipt Date: 20250828
  Transmission Date: 20251021
  Serious: Yes (Other)
  Sender: FDA-CTU
  Company Number: None

PATIENT
  Age: 54 Year
  Sex: Male
  Weight: 105.75 kg

DRUGS (20)
  1. JARDIANCE [Suspect]
     Active Substance: EMPAGLIFLOZIN
     Indication: Type 2 diabetes mellitus
     Route: 048
     Dates: start: 20250822, end: 20250826
  2. JARDIANCE [Suspect]
     Active Substance: EMPAGLIFLOZIN
     Indication: Obesity
  3. JARDIANCE [Suspect]
     Active Substance: EMPAGLIFLOZIN
     Indication: Chronic kidney disease
  4. Dexcom G7 (glucose monitor) [Concomitant]
  5. Muonjaro 5 [Concomitant]
  6. Humalog type Insulin [Concomitant]
  7. LANTUS [Concomitant]
     Active Substance: INSULIN GLARGINE
  8. IRON [Concomitant]
     Active Substance: IRON
  9. Tumeric with Black pepper [Concomitant]
  10. ALPHA LIPOIC ACID [Concomitant]
     Active Substance: .ALPHA.-LIPOIC ACID
  11. L Carnitin [Concomitant]
  12. Fish Oil/Flax Seed oil [Concomitant]
  13. MINERALS\VITAMINS [Concomitant]
     Active Substance: MINERALS\VITAMINS
  14. VITAMIN C [Concomitant]
     Active Substance: ASCORBIC ACID
  15. FOLIC ACID [Concomitant]
     Active Substance: FOLIC ACID
  16. Cholesst-Off [Concomitant]
  17. Vit D3 5k [Concomitant]
  18. Probiotic High potency [Concomitant]
  19. CRANBERRY [Concomitant]
     Active Substance: CRANBERRY
  20. ZINC [Concomitant]
     Active Substance: ZINC

REACTIONS (7)
  - Irritability [None]
  - Mood altered [None]
  - Mood swings [None]
  - Anger [None]
  - Accident at home [None]
  - Injury [None]
  - Therapy interrupted [None]

NARRATIVE: CASE EVENT DATE: 20250827
